FAERS Safety Report 14006298 (Version 2)
Quarter: 2017Q4

REPORT INFORMATION
  Report Type: Spontaneous
  Country: US (occurrence: US)
  Receive Date: 20170924
  Receipt Date: 20171031
  Transmission Date: 20180321
  Serious: No
  Sender: FDA-Public Use
  Company Number: US-009507513-1709USA008962

PATIENT
  Age: 79 Year
  Sex: Female

DRUGS (1)
  1. BELSOMRA [Suspect]
     Active Substance: SUVOREXANT
     Indication: SLEEP DISORDER
     Dosage: 20 MG, AT BEDTIME AS NEEDED
     Route: 048
     Dates: start: 20170915

REACTIONS (2)
  - Asthenopia [Unknown]
  - Somnolence [Unknown]

NARRATIVE: CASE EVENT DATE: 201709
